FAERS Safety Report 9431758 (Version 1)
Quarter: 2013Q3

REPORT INFORMATION
  Report Type: Spontaneous
  Country: US (occurrence: US)
  Receive Date: 20130731
  Receipt Date: 20130731
  Transmission Date: 20140515
  Serious: Yes (Life-Threatening, Hospitalization)
  Sender: FDA-Public Use
  Company Number: US-009507513-1307USA011616

PATIENT
  Age: 34 Year
  Sex: Female
  Weight: 80.27 kg

DRUGS (3)
  1. NEXPLANON [Suspect]
     Indication: CONTRACEPTION
     Dosage: EVERY 3 YEARS, 1 ROD
     Route: 059
     Dates: start: 20130625, end: 20130720
  2. PHENTERMINE [Concomitant]
     Dosage: 37.5 ML, UNK
  3. TOPAMAX [Concomitant]

REACTIONS (2)
  - Hypersensitivity [Not Recovered/Not Resolved]
  - Drug hypersensitivity [Recovered/Resolved]
